FAERS Safety Report 7354628-X (Version None)
Quarter: 2011Q1

REPORT INFORMATION
  Report Type: 
  Country: None (occurrence: None)
  Receive Date: 20110316
  Receipt Date: 20110310
  Transmission Date: 20110831
  Serious: No
  Sender: FDA-Public Use
  Company Number: US-PFIZER INC-2011053381

PATIENT
  Sex: Male

DRUGS (2)
  1. CITALOPRAM [Suspect]
     Dosage: UNK
  2. TIKOSYN [Suspect]

REACTIONS (1)
  - HEART RATE IRREGULAR [None]
